FAERS Safety Report 22374637 (Version 1)
Quarter: 2023Q2

REPORT INFORMATION
  Report Type: Spontaneous
  Country: TR (occurrence: TR)
  Receive Date: 20230526
  Receipt Date: 20230526
  Transmission Date: 20230722
  Serious: Yes (Other)
  Sender: FDA-Public Use
  Company Number: TR-JAZZ PHARMACEUTICALS-2023-TR-011208

PATIENT
  Age: 3 Year
  Sex: Female

DRUGS (1)
  1. ASPARAGINASE [Suspect]
     Active Substance: ASPARAGINASE
     Indication: Acute lymphocytic leukaemia
     Dosage: 4 WEEKS

REACTIONS (6)
  - Deep vein thrombosis [Unknown]
  - Febrile neutropenia [Unknown]
  - Haematoma [Unknown]
  - Joint dislocation [Recovering/Resolving]
  - Developmental hip dysplasia [Unknown]
  - Swelling [Unknown]
